FAERS Safety Report 6869951-2 (Version None)
Quarter: 2010Q3

REPORT INFORMATION
  Report Type: 
  Country: None (occurrence: None)
  Receive Date: 20100722
  Receipt Date: 20080906
  Transmission Date: 20110219
  Serious: No
  Sender: FDA-Public Use
  Company Number: US-PFIZER INC-2008075646

PATIENT
  Sex: Male
  Weight: 72.727 kg

DRUGS (4)
  1. CHANTIX [Suspect]
     Indication: SMOKING CESSATION THERAPY
     Dates: start: 20080823
  2. OXYCODONE [Concomitant]
  3. METHADONE HCL [Concomitant]
  4. OXAZEPAM [Concomitant]
     Indication: PAIN

REACTIONS (6)
  - DECREASED APPETITE [None]
  - DYSGEUSIA [None]
  - FATIGUE [None]
  - INFLUENZA [None]
  - LETHARGY [None]
  - NAUSEA [None]
